FAERS Safety Report 13720459 (Version 1)
Quarter: 2017Q3

REPORT INFORMATION
  Report Type: Spontaneous
  Country: US (occurrence: US)
  Receive Date: 20170706
  Receipt Date: 20170706
  Transmission Date: 20171127
  Serious: No
  Sender: FDA-Public Use
  Company Number: US-ELI_LILLY_AND_COMPANY-US201706004942

PATIENT
  Age: 54 Year
  Sex: Male

DRUGS (6)
  1. HUMULIN R [Suspect]
     Active Substance: INSULIN HUMAN
     Dosage: 10 IU, NIGHT
     Route: 058
     Dates: end: 20170101
  2. HUMULIN R [Suspect]
     Active Substance: INSULIN HUMAN
     Indication: DIABETES MELLITUS
     Dosage: 32 IU, MORNING
     Route: 058
  3. HUMULIN R [Suspect]
     Active Substance: INSULIN HUMAN
     Dosage: 15 IU, MID-DAY
     Route: 058
     Dates: end: 20170101
  4. HUMULIN R [Suspect]
     Active Substance: INSULIN HUMAN
     Dosage: 10 IU, NIGHT
     Route: 058
     Dates: end: 201701
  5. HUMULIN R [Suspect]
     Active Substance: INSULIN HUMAN
     Dosage: 15 IU, MID-DAY
     Route: 058
  6. HUMULIN R [Suspect]
     Active Substance: INSULIN HUMAN
     Dosage: 32 IU, MORNING
     Route: 058
     Dates: end: 20170101

REACTIONS (4)
  - Dyspnoea [Unknown]
  - Blood glucose decreased [Recovering/Resolving]
  - Gait disturbance [Recovering/Resolving]
  - Peripheral swelling [Not Recovered/Not Resolved]

NARRATIVE: CASE EVENT DATE: 201701
